FAERS Safety Report 15539642 (Version 1)
Quarter: 2018Q4

REPORT INFORMATION
  Report Type: Spontaneous
  Country: US (occurrence: US)
  Receive Date: 20181023
  Receipt Date: 20181023
  Transmission Date: 20190205
  Serious: No
  Sender: FDA-Public Use
  Company Number: US-INSYS THERAPEUTICS, INC-INS201808-000283

PATIENT
  Age: 47 Year
  Sex: Male
  Weight: 59 kg

DRUGS (2)
  1. BIKTARVY [Concomitant]
     Active Substance: BICTEGRAVIR SODIUM\EMTRICITABINE\TENOFOVIR ALAFENAMIDE FUMARATE
  2. SYNDROS [Suspect]
     Active Substance: DRONABINOL
     Indication: DECREASED APPETITE
     Dates: start: 201806

REACTIONS (2)
  - Product taste abnormal [Not Recovered/Not Resolved]
  - Vomiting [Unknown]

NARRATIVE: CASE EVENT DATE: 201806
